FAERS Safety Report 7271589-2 (Version None)
Quarter: 2011Q1

REPORT INFORMATION
  Report Type: 
  Country: None (occurrence: None)
  Receive Date: 20110121
  Receipt Date: 20110121
  Transmission Date: 20110831
  Serious: Yes (Other)
  Sender: FDA-Public Use
  Company Number: None

PATIENT
  Age: 59 Year
  Sex: Female
  Weight: 70.3075 kg

DRUGS (1)
  1. CLINDAMYCIN [Suspect]
     Indication: TOOTH DISORDER
     Dosage: 2- 300 MG IMMEDIATELY PO, 1 300 MG TWICE DAILY PO
     Route: 048
     Dates: start: 20101220, end: 20101221

REACTIONS (5)
  - RASH [None]
  - FILARIASIS [None]
  - GAIT DISTURBANCE [None]
  - GENITAL SWELLING [None]
  - OEDEMA GENITAL [None]
